FAERS Safety Report 10239875 (Version 1)
Quarter: 2014Q2

REPORT INFORMATION
  Report Type: Spontaneous
  Country: DE (occurrence: DE)
  Receive Date: 20140616
  Receipt Date: 20140616
  Transmission Date: 20141212
  Serious: Yes (Other)
  Sender: FDA-Public Use
  Company Number: DE-GILEAD-2014-0105599

PATIENT
  Sex: Male

DRUGS (2)
  1. STRIBILD [Suspect]
     Indication: HIV INFECTION
     Route: 065
  2. TRIAMCINOLONE [Suspect]
     Indication: PRODUCT USED FOR UNKNOWN INDICATION
     Route: 014

REACTIONS (4)
  - Cushing^s syndrome [Not Recovered/Not Resolved]
  - Lipoatrophy [Not Recovered/Not Resolved]
  - Night sweats [Not Recovered/Not Resolved]
  - Liver function test abnormal [Not Recovered/Not Resolved]
